FAERS Safety Report 22366604 (Version 1)
Quarter: 2023Q2

REPORT INFORMATION
  Report Type: Spontaneous
  Country: CN (occurrence: CN)
  Receive Date: 20230525
  Receipt Date: 20230525
  Transmission Date: 20230722
  Serious: Yes (Other)
  Sender: FDA-Public Use
  Company Number: None

PATIENT
  Age: 44 Year
  Sex: Male
  Weight: 76 kg

DRUGS (1)
  1. MANNITOL [Suspect]
     Active Substance: MANNITOL
     Indication: Intervertebral disc protrusion
     Dosage: 125 MILLILITERS, ONCE DAILY, DOSAGE FORM: INJECTION
     Route: 041
     Dates: start: 20230508, end: 20230508

REACTIONS (6)
  - Hypersensitivity [Recovered/Resolved]
  - Erythema [Recovered/Resolved]
  - Periorbital swelling [Recovered/Resolved]
  - Swelling [Recovered/Resolved]
  - Hypoaesthesia oral [Recovered/Resolved]
  - Rash [Recovered/Resolved]

NARRATIVE: CASE EVENT DATE: 20230508
